FAERS Safety Report 22285677 (Version 1)
Quarter: 2023Q2

REPORT INFORMATION
  Report Type: Spontaneous
  Country: US (occurrence: US)
  Receive Date: 20230504
  Receipt Date: 20230504
  Transmission Date: 20230722
  Serious: No
  Sender: FDA-Public Use
  Company Number: US-009507513-2304USA002712

PATIENT
  Age: 66 Year
  Sex: Female

DRUGS (2)
  1. KEYTRUDA [Suspect]
     Active Substance: PEMBROLIZUMAB
     Indication: Endometrial cancer metastatic
     Dosage: UNK
     Dates: end: 20230321
  2. LENVATINIB MESYLATE [Suspect]
     Active Substance: LENVATINIB MESYLATE
     Indication: Endometrial cancer metastatic
     Dosage: 18 MILLIGRAM, QD
     Route: 048
     Dates: start: 20230226

REACTIONS (7)
  - Adverse event [Unknown]
  - Epistaxis [Unknown]
  - Paranasal sinus discomfort [Unknown]
  - Diarrhoea [Unknown]
  - Headache [Unknown]
  - Blood pressure abnormal [Unknown]
  - Incorrect dose administered [Unknown]

NARRATIVE: CASE EVENT DATE: 20230101
